FAERS Safety Report 12897773 (Version 2)
Quarter: 2016Q4

REPORT INFORMATION
  Report Type: Spontaneous
  Country: None (occurrence: ZA)
  Receive Date: 20161031
  Receipt Date: 20161110
  Transmission Date: 20170207
  Serious: Yes (Hospitalization, Other)
  Sender: FDA-Public Use
  Company Number: ZA-MERCK KGAA-1059078

PATIENT

DRUGS (1)
  1. NOVOTHYROX [Suspect]
     Active Substance: LEVOTHYROXINE SODIUM

REACTIONS (9)
  - Hydronephrosis [None]
  - Aphasia [None]
  - Dyspnoea [None]
  - Cardiac disorder [None]
  - Aggression [None]
  - Abasia [None]
  - Incorrect dose administered [None]
  - Activities of daily living impaired [None]
  - Asthenia [None]
